FAERS Safety Report 18193835 (Version 1)
Quarter: 2020Q3

REPORT INFORMATION
  Report Type: Spontaneous
  Country: US (occurrence: US)
  Receive Date: 20200825
  Receipt Date: 20200825
  Transmission Date: 20201103
  Serious: No
  Sender: FDA-Public Use
  Company Number: US-AMGEN-USASP2020134588

PATIENT

DRUGS (4)
  1. KANJINTI [Suspect]
     Active Substance: TRASTUZUMAB-ANNS
     Indication: PRODUCT USED FOR UNKNOWN INDICATION
     Dosage: UNK
     Route: 065
  2. KANJINTI [Suspect]
     Active Substance: TRASTUZUMAB-ANNS
     Dosage: UNK
     Route: 065
  3. KANJINTI [Suspect]
     Active Substance: TRASTUZUMAB-ANNS
     Dosage: UNK
     Route: 065
  4. KANJINTI [Suspect]
     Active Substance: TRASTUZUMAB-ANNS
     Dosage: UNK
     Route: 065

REACTIONS (1)
  - Wrong technique in product usage process [Unknown]

NARRATIVE: CASE EVENT DATE: 2020
